APPROVED DRUG PRODUCT: TIGECYCLINE
Active Ingredient: TIGECYCLINE
Strength: 50MG/VIAL
Dosage Form/Route: POWDER;INTRAVENOUS
Application: N208744 | Product #001
Applicant: ACCORD HEALTHCARE INC USA
Approved: Jan 18, 2018 | RLD: No | RS: No | Type: DISCN